FAERS Safety Report 21789827 (Version 1)
Quarter: 2022Q4

REPORT INFORMATION
  Report Type: Spontaneous
  Country: KR (occurrence: None)
  Receive Date: 20221228
  Receipt Date: 20221228
  Transmission Date: 20230113
  Serious: Yes (Hospitalization)
  Sender: FDA-Public Use
  Company Number: 2022A412029

PATIENT
  Age: 73 Year
  Sex: Female

DRUGS (1)
  1. SYMBICORT [Suspect]
     Active Substance: BUDESONIDE\FORMOTEROL FUMARATE DIHYDRATE
     Route: 055

REACTIONS (7)
  - Asthma [Unknown]
  - Headache [Unknown]
  - Productive cough [Unknown]
  - Dysphonia [Unknown]
  - Nervousness [Unknown]
  - Palpitations [Unknown]
  - Insomnia [Unknown]
